FAERS Safety Report 8345353-7 (Version None)
Quarter: 2012Q2

REPORT INFORMATION
  Report Type: 
  Country: None (occurrence: None)
  Receive Date: 20120402
  Receipt Date: 20110804
  Transmission Date: 20120825
  Serious: Yes (Other)
  Sender: FDA-Public Use
  Company Number: 294845USA

PATIENT
  Age: 21 Year
  Sex: Female
  Weight: 52.1637 kg

DRUGS (3)
  1. AMPHETAMINE AND DEXTROAMPHETAMINE SALTS [Suspect]
     Indication: ATTENTION DEFICIT/HYPERACTIVITY DISORDER
     Dosage: 30 MG (30 MG, 1 IN 1 D),ORAL
     Route: 048
     Dates: start: 20030101, end: 20110201
  2. GABAPENTIN [Suspect]
     Indication: BIPOLAR DISORDER
     Dosage: 200 MG (100 MG, 2 IN 1 D),ORAL
     Route: 048
     Dates: start: 20040101, end: 20110201
  3. LAMOTRIGINE [Suspect]
     Indication: BIPOLAR DISORDER
     Dosage: 300 MG (150 MG, 2 IN 1 D),ORAL
     Route: 048
     Dates: start: 20030101, end: 20110201

REACTIONS (5)
  - BIPOLAR DISORDER [None]
  - ANXIETY [None]
  - CRYING [None]
  - ATTENTION DEFICIT/HYPERACTIVITY DISORDER [None]
  - FEELING ABNORMAL [None]
